FAERS Safety Report 5315571-0 (Version None)
Quarter: 2007Q2

REPORT INFORMATION
  Report Type: 
  Country: None (occurrence: None)
  Receive Date: 20070427
  Receipt Date: 20070416
  Transmission Date: 20071010
  Serious: Yes (Hospitalization, Other)
  Sender: FDA-Public Use
  Company Number: 07H-163-0312462-00

PATIENT
  Age: 64 Year
  Sex: Male

DRUGS (3)
  1. HEPARIN SODIUM INJECTION [Suspect]
     Indication: ANTICOAGULANT THERAPY
  2. FRESH FROZEN PLASMA [Concomitant]
  3. PHYTONADIONE [Concomitant]

REACTIONS (8)
  - ABDOMINAL PAIN UPPER [None]
  - HEPARIN-INDUCED THROMBOCYTOPENIA [None]
  - PERITONEAL HAEMORRHAGE [None]
  - POST PROCEDURAL COMPLICATION [None]
  - SPLENIC HAEMORRHAGE [None]
  - SPLENIC INFARCTION [None]
  - SPLENIC RUPTURE [None]
  - THROMBOSIS [None]
